FAERS Safety Report 25099602 (Version 1)
Quarter: 2025Q1

REPORT INFORMATION
  Report Type: Spontaneous
  Country: RU (occurrence: RU)
  Receive Date: 20250320
  Receipt Date: 20250320
  Transmission Date: 20250408
  Serious: Yes (Other)
  Sender: Haleon PLC
  Company Number: RU-HALEON-2179900

PATIENT
  Age: 41 Year
  Sex: Female

DRUGS (19)
  1. DICLOFENAC [Suspect]
     Active Substance: DICLOFENAC
     Indication: Arthralgia
  2. DICLOFENAC [Suspect]
     Active Substance: DICLOFENAC
     Indication: Myalgia
  3. IBUPROFEN [Suspect]
     Active Substance: IBUPROFEN
     Indication: Arthralgia
  4. IBUPROFEN [Suspect]
     Active Substance: IBUPROFEN
     Indication: Pyrexia
  5. IBUPROFEN [Suspect]
     Active Substance: IBUPROFEN
     Indication: Lymphadenopathy
  6. IBUPROFEN [Suspect]
     Active Substance: IBUPROFEN
     Indication: Lymph node pain
  7. ACECLOFENAC [Suspect]
     Active Substance: ACECLOFENAC
     Indication: Tendonitis
  8. OMEPRAZOLE [Concomitant]
     Active Substance: OMEPRAZOLE
     Indication: Arthralgia
  9. BETAMETHASONE [Concomitant]
     Active Substance: BETAMETHASONE
     Indication: Product used for unknown indication
  10. NIMESULIDE [Concomitant]
     Active Substance: NIMESULIDE
     Indication: Pain
  11. MELOXICAM [Concomitant]
     Active Substance: MELOXICAM
     Indication: Pain
  12. ARCOXIA [Concomitant]
     Active Substance: ETORICOXIB
     Indication: Muscle swelling
  13. ARCOXIA [Concomitant]
     Active Substance: ETORICOXIB
     Indication: Synovitis
  14. SULFASALAZINE [Concomitant]
     Active Substance: SULFASALAZINE
     Indication: Myalgia
     Dosage: SINCE JAN2024
  15. SULFASALAZINE [Concomitant]
     Active Substance: SULFASALAZINE
     Indication: Arthralgia
  16. Imipenem + ?Cilastatin [Concomitant]
     Indication: Product used for unknown indication
     Route: 042
  17. LINEZOLID [Concomitant]
     Active Substance: LINEZOLID
     Indication: Product used for unknown indication
     Route: 042
  18. FLUCONAZOLE [Concomitant]
     Active Substance: FLUCONAZOLE
     Indication: Product used for unknown indication
     Route: 042
  19. AMIKACIN [Concomitant]
     Active Substance: AMIKACIN
     Indication: Product used for unknown indication
     Route: 042
     Dates: start: 20240209

REACTIONS (1)
  - Agranulocytosis [Recovering/Resolving]
